FAERS Safety Report 6517284-6 (Version None)
Quarter: 2009Q4

REPORT INFORMATION
  Report Type: 
  Country: None (occurrence: None)
  Receive Date: 20091218
  Receipt Date: 20091210
  Transmission Date: 20100525
  Serious: Yes (Hospitalization)
  Sender: FDA-Public Use
  Company Number: 002876

PATIENT
  Sex: Female
  Weight: 72.5 kg

DRUGS (3)
  1. KEPPRA [Suspect]
     Indication: CONVULSION
     Dosage: 500 MG BID ORAL
     Route: 048
     Dates: start: 20070101
  2. DEPAKOTE [Concomitant]
  3. CLONIDINE [Concomitant]

REACTIONS (3)
  - CONDITION AGGRAVATED [None]
  - CONVULSION [None]
  - HYPERTENSION [None]
